FAERS Safety Report 5081576-0 (Version None)
Quarter: 2006Q3

REPORT INFORMATION
  Report Type: 
  Country: None (occurrence: None)
  Receive Date: 20060811
  Receipt Date: 20060803
  Transmission Date: 20061208
  Serious: Yes (Hospitalization)
  Sender: FDA-Public Use
  Company Number: 060126

PATIENT
  Age: 11 Year
  Sex: Female
  Weight: 54.4316 kg

DRUGS (1)
  1. GOLYTELY [Suspect]
     Indication: PREOPERATIVE CARE
     Dosage: 1 LITER, 1X, NG
     Dates: start: 20060729

REACTIONS (5)
  - DISCOMFORT [None]
  - ENDOTRACHEAL INTUBATION COMPLICATION [None]
  - RESTLESSNESS [None]
  - VOMITING [None]
  - WRONG TECHNIQUE IN DRUG USAGE PROCESS [None]
